FAERS Safety Report 4485086-0 (Version None)
Quarter: 2004Q4

REPORT INFORMATION
  Report Type: 
  Country: None (occurrence: None)
  Receive Date: 20041021
  Receipt Date: 20041021
  Transmission Date: 20050328
  Serious: Yes (Hospitalization)
  Sender: FDA-Public Use
  Company Number: None

PATIENT
  Age: 57 Year
  Sex: Male

DRUGS (8)
  1. AMIODARONE HCL [Suspect]
     Indication: ATRIAL FIBRILLATION
     Dosage: 200 MG QD ORAL
     Route: 048
  2. BENAZEPRIL HCL [Concomitant]
  3. METOPROL XL [Concomitant]
  4. FUROSEMIDE [Concomitant]
  5. COLCHICINE [Concomitant]
  6. GLIPIZIDE [Concomitant]
  7. DIGOXIN [Concomitant]
  8. WARFARIN SODIUM [Concomitant]

REACTIONS (4)
  - DYSPNOEA [None]
  - DYSPNOEA EXERTIONAL [None]
  - HYPERTHYROIDISM [None]
  - ORTHOPNOEA [None]
